FAERS Safety Report 10912804 (Version 1)
Quarter: 2015Q1

REPORT INFORMATION
  Report Type: Spontaneous
  Country: SE (occurrence: SE)
  Receive Date: 20150313
  Receipt Date: 20150313
  Transmission Date: 20150721
  Serious: Yes (Other)
  Sender: FDA-Public Use
  Company Number: SE-009507513-1503SWE004315

PATIENT
  Age: 35 Year
  Sex: Female
  Weight: 67 kg

DRUGS (5)
  1. VITAMINS (UNSPECIFIED) [Concomitant]
     Active Substance: VITAMINS
  2. FOLLITROPIN BETA [Suspect]
     Active Substance: FOLLITROPIN
     Indication: INFERTILITY
     Dosage: DAILY
     Dates: start: 20141105, end: 20141109
  3. SUPRECUR [Concomitant]
     Active Substance: BUSERELIN
     Dosage: UNK, TID
     Dates: start: 201411, end: 201411
  4. OVITRELLE [Concomitant]
     Active Substance: CHORIOGONADOTROPIN ALFA
     Dosage: UNK, ONCE
     Dates: start: 20141112, end: 20141112
  5. FOLLITROPIN BETA [Suspect]
     Active Substance: FOLLITROPIN
     Indication: IN VITRO FERTILISATION
     Dosage: DAILY
     Dates: start: 20141110, end: 20141111

REACTIONS (7)
  - Diplopia [Not Recovered/Not Resolved]
  - Eye swelling [None]
  - Hormone level abnormal [Unknown]
  - Visual field defect [Not Recovered/Not Resolved]
  - Feeling abnormal [Not Recovered/Not Resolved]
  - Dizziness [Not Recovered/Not Resolved]
  - Infertility [Unknown]

NARRATIVE: CASE EVENT DATE: 201411
